FAERS Safety Report 9007336 (Version 1)
Quarter: 2013Q1

REPORT INFORMATION
  Report Type: Spontaneous
  Country: BR (occurrence: BR)
  Receive Date: 20130110
  Receipt Date: 20130110
  Transmission Date: 20140127
  Serious: Yes (Other)
  Sender: FDA-Public Use
  Company Number: PHHY2013BR002285

PATIENT
  Sex: Female

DRUGS (2)
  1. TEGRETOL CR [Suspect]
     Indication: CONVULSION
     Dosage: 400 MG, UNK
     Route: 048
  2. TEGRETOL CR [Suspect]
     Dosage: 200 MG, UNK
     Route: 048

REACTIONS (3)
  - Mass [Recovering/Resolving]
  - Movement disorder [Recovering/Resolving]
  - Speech disorder [Recovering/Resolving]
